FAERS Safety Report 24917993 (Version 1)
Quarter: 2025Q1

REPORT INFORMATION
  Report Type: Spontaneous
  Country: US (occurrence: US)
  Receive Date: 20250203
  Receipt Date: 20250203
  Transmission Date: 20250409
  Serious: Yes (Hospitalization)
  Sender: ELI LILLY AND COMPANY
  Company Number: US-ELI_LILLY_AND_COMPANY-US202501021908

PATIENT
  Age: 64 Year
  Sex: Female

DRUGS (2)
  1. ZEPBOUND [Suspect]
     Active Substance: TIRZEPATIDE
     Indication: Product used for unknown indication
     Route: 065
  2. ZEPBOUND [Suspect]
     Active Substance: TIRZEPATIDE
     Indication: Product used for unknown indication
     Route: 065

REACTIONS (15)
  - Hypersensitivity [Unknown]
  - Chapped lips [Unknown]
  - Oral discomfort [Unknown]
  - Oral pruritus [Unknown]
  - Lip exfoliation [Unknown]
  - Tongue exfoliation [Unknown]
  - Skin fissures [Unknown]
  - Lip haemorrhage [Unknown]
  - Tongue discomfort [Unknown]
  - Gastrointestinal sounds abnormal [Unknown]
  - Abdominal pain upper [Unknown]
  - Lip swelling [Unknown]
  - Swelling face [Unknown]
  - Weight increased [Unknown]
  - Drug ineffective [Unknown]
